FAERS Safety Report 7446156-8 (Version None)
Quarter: 2011Q2

REPORT INFORMATION
  Report Type: 
  Country: None (occurrence: None)
  Receive Date: 20110429
  Receipt Date: 20110421
  Transmission Date: 20111010
  Serious: Yes (Death)
  Sender: FDA-Public Use
  Company Number: B0715068A

PATIENT
  Sex: Female
  Weight: 55 kg

DRUGS (8)
  1. ITRIZOLE [Concomitant]
     Dosage: 20ML PER DAY
     Route: 048
     Dates: start: 20071210, end: 20071215
  2. VALTREX [Concomitant]
     Dosage: 500MG PER DAY
     Route: 048
     Dates: start: 20071210, end: 20071215
  3. ALKERAN [Suspect]
     Indication: STEM CELL TRANSPLANT
     Dosage: 200MG PER DAY
     Route: 042
     Dates: start: 20071210, end: 20071210
  4. OMEPRAL [Concomitant]
     Dosage: 20MG PER DAY
     Route: 048
     Dates: start: 20071210, end: 20071215
  5. LASTET [Suspect]
     Indication: STEM CELL TRANSPLANT
     Dosage: 300MG PER DAY
     Route: 042
     Dates: start: 20071206, end: 20071209
  6. CYLOCIDE [Suspect]
     Indication: STEM CELL TRANSPLANT
     Dosage: 600MG PER DAY
     Route: 042
     Dates: start: 20071206, end: 20071209
  7. UNKNOWN DRUG [Concomitant]
     Dosage: 400MG PER DAY
     Route: 048
     Dates: start: 20071210, end: 20071215
  8. CYMERIN [Suspect]
     Indication: STEM CELL TRANSPLANT
     Dosage: 460MG PER DAY
     Route: 042
     Dates: start: 20071205, end: 20071205

REACTIONS (1)
  - SEPSIS [None]
